FAERS Safety Report 20589974 (Version 2)
Quarter: 2022Q2

REPORT INFORMATION
  Report Type: Spontaneous
  Country: IE (occurrence: IE)
  Receive Date: 20220314
  Receipt Date: 20220401
  Transmission Date: 20220721
  Serious: Yes (Death, Other)
  Sender: FDA-Public Use
  Company Number: IE-GLAXOSMITHKLINE-IE2022EME045275

PATIENT
  Sex: Female

DRUGS (1)
  1. NUCALA [Suspect]
     Active Substance: MEPOLIZUMAB
     Indication: Product used for unknown indication
     Dosage: 100 MG, Z EVERY 4 WEEKS

REACTIONS (1)
  - Death [Fatal]
